FAERS Safety Report 13783437 (Version 1)
Quarter: 2017Q3

REPORT INFORMATION
  Report Type: Spontaneous
  Country: None (occurrence: US)
  Receive Date: 20170724
  Receipt Date: 20170724
  Transmission Date: 20171127
  Serious: No
  Sender: FDA-Public Use
  Company Number: US-IMPAX LABORATORIES, INC-2017-IPXL-01491

PATIENT
  Age: 77 Year
  Sex: Female

DRUGS (8)
  1. MIDODRINE HYDROCHLORIDE. [Suspect]
     Active Substance: MIDODRINE HYDROCHLORIDE
     Dosage: 5 MG, TID
     Route: 065
     Dates: start: 201705
  2. NORTHERA [Suspect]
     Active Substance: DROXIDOPA
     Indication: AUTONOMIC NERVOUS SYSTEM IMBALANCE
     Dosage: 100 MG, 48 H TITRATION SCHEDULE
     Route: 048
     Dates: start: 20170420, end: 2017
  3. NORTHERA [Suspect]
     Active Substance: DROXIDOPA
     Indication: SYNCOPE
     Dosage: 600 MG, TID
     Route: 048
     Dates: start: 2017, end: 201705
  4. NORTHERA [Suspect]
     Active Substance: DROXIDOPA
     Dosage: TITRATED, UNK
     Route: 048
  5. MIDODRINE HYDROCHLORIDE. [Suspect]
     Active Substance: MIDODRINE HYDROCHLORIDE
     Indication: PRODUCT USED FOR UNKNOWN INDICATION
     Dosage: UNK
     Route: 065
  6. MIDODRINE HYDROCHLORIDE. [Suspect]
     Active Substance: MIDODRINE HYDROCHLORIDE
     Dosage: 10 MG, TID
     Route: 065
     Dates: end: 201705
  7. MIDODRINE HYDROCHLORIDE. [Suspect]
     Active Substance: MIDODRINE HYDROCHLORIDE
     Dosage: 5 MG, TID
     Route: 065
     Dates: start: 201705, end: 201705
  8. NORTHERA [Suspect]
     Active Substance: DROXIDOPA
     Dosage: 300 MG, TID
     Route: 048
     Dates: start: 201705, end: 2017

REACTIONS (5)
  - Skin irritation [Recovered/Resolved]
  - Blood pressure increased [Recovered/Resolved]
  - Neck pain [Recovered/Resolved]
  - Dizziness [Recovered/Resolved]
  - Headache [Recovered/Resolved]

NARRATIVE: CASE EVENT DATE: 20170420
